FAERS Safety Report 19464450 (Version 6)
Quarter: 2025Q4

REPORT INFORMATION
  Report Type: Spontaneous
  Country: EU (occurrence: EU)
  Receive Date: 20210626
  Receipt Date: 20251216
  Transmission Date: 20260117
  Serious: Yes (Hospitalization, Other)
  Sender: AUROBINDO
  Company Number: EU-MLMSERVICE-20210617-2946660-1

PATIENT
  Age: 63 Year
  Sex: Female

DRUGS (11)
  1. QUETIAPINE [Suspect]
     Active Substance: QUETIAPINE
     Indication: Hallucination
     Dosage: 25 MILLIGRAM, ONCE A DAY (EVENING)
     Route: 065
  2. PERAZINE [Suspect]
     Active Substance: PERAZINE
     Indication: Hallucination
     Dosage: 150 MILLIGRAM, ONCE A DAY (EVENING)
     Route: 065
  3. RISPERIDONE [Suspect]
     Active Substance: RISPERIDONE
     Indication: Hallucination
     Dosage: 0.5 MILLIGRAM, ONCE A DAY(EVERY EVENING )
     Route: 065
  4. MOCLOBEMIDE [Suspect]
     Active Substance: MOCLOBEMIDE
     Indication: Hallucination
     Dosage: 150 MILLIGRAM, TWO TIMES A DAY (IN THE MORNING AND AT NOON)
     Route: 065
     Dates: start: 2014, end: 2018
  5. SULPIRIDE [Suspect]
     Active Substance: SULPIRIDE
     Indication: Hallucination
     Dosage: 100 MILLIGRAM, TWO TIMES A DAY (IN THE MORNING AND AT NOON)
     Route: 065
  6. TRAZODONE [Suspect]
     Active Substance: TRAZODONE HYDROCHLORIDE
     Indication: Insomnia
     Dosage: 150 MILLIGRAM
     Route: 065
  7. TRAZODONE [Suspect]
     Active Substance: TRAZODONE HYDROCHLORIDE
     Indication: Hallucination
     Dosage: UNK (DOSE OF 4 TIMES HIGHER)
     Route: 065
  8. TRAZODONE [Suspect]
     Active Substance: TRAZODONE HYDROCHLORIDE
     Indication: Sleep disorder
     Dosage: UNK
     Route: 065
  9. HYDROXYZINE [Concomitant]
     Active Substance: HYDROXYZINE HYDROCHLORIDE
     Indication: Product used for unknown indication
     Dosage: 25 MILLIGRAM, ONCE A DAY(TAKEN IN THE EVENING )
     Route: 065
  10. BIPERIDEN [Concomitant]
     Active Substance: BIPERIDEN
     Indication: Product used for unknown indication
     Dosage: 2 MILLIGRAM, TWO TIMES A DAY (IN THE MORNING AND AT NOON)
     Route: 065
  11. BIPERIDEN [Concomitant]
     Active Substance: BIPERIDEN
     Dosage: 1 MILLIGRAM (IN THE MORNING AND AT NOON )
     Route: 065

REACTIONS (3)
  - Balance disorder [Unknown]
  - Electrocardiogram QT prolonged [Recovering/Resolving]
  - Long QT syndrome [Unknown]
